FAERS Safety Report 7048583-X (Version None)
Quarter: 2010Q4

REPORT INFORMATION
  Report Type: 
  Country: None (occurrence: None)
  Receive Date: 20101017
  Receipt Date: 20101004
  Transmission Date: 20110411
  Serious: Yes (Hospitalization)
  Sender: FDA-Public Use
  Company Number: IT-MYLANLABS-2010S1018484

PATIENT
  Age: 24 Year
  Sex: Female

DRUGS (2)
  1. VENLAFAXINE [Suspect]
     Indication: MAJOR DEPRESSION
     Route: 065
  2. LORAZEPAM [Concomitant]
     Indication: MAJOR DEPRESSION
     Route: 065

REACTIONS (2)
  - COTARD'S SYNDROME [None]
  - NO THERAPEUTIC RESPONSE [None]
